FAERS Safety Report 21317256 (Version 2)
Quarter: 2022Q3

REPORT INFORMATION
  Report Type: Spontaneous
  Country: US (occurrence: US)
  Receive Date: 20220911
  Receipt Date: 20220924
  Transmission Date: 20221027
  Serious: No
  Sender: FDA-Public Use
  Company Number: US-SA-SAC20220824000069

PATIENT
  Age: 25 Year
  Sex: Female

DRUGS (1)
  1. DUPIXENT [Suspect]
     Active Substance: DUPILUMAB
     Indication: Eosinophilic oesophagitis
     Dosage: 300 MG, QW
     Route: 058
     Dates: start: 20220802

REACTIONS (15)
  - Headache [Unknown]
  - Decreased appetite [Unknown]
  - Injection site urticaria [Unknown]
  - Dark circles under eyes [Unknown]
  - Hyperhidrosis [Unknown]
  - Eyelid margin crusting [Unknown]
  - Upper respiratory tract infection [Unknown]
  - Insomnia [Unknown]
  - Arthralgia [Unknown]
  - Weight increased [Unknown]
  - Ear pain [Unknown]
  - Eye pain [Unknown]
  - Sinus pain [Unknown]
  - Eye disorder [Unknown]
  - Therapeutic response decreased [Unknown]
